FAERS Safety Report 14966830 (Version 1)
Quarter: 2018Q2

REPORT INFORMATION
  Report Type: Spontaneous
  Country: ES (occurrence: ES)
  Receive Date: 20180604
  Receipt Date: 20180604
  Transmission Date: 20180711
  Serious: No
  Sender: FDA-Public Use
  Company Number: ES-CHEPLA-C20180109

PATIENT
  Sex: Female
  Weight: 103 kg

DRUGS (1)
  1. XENICAL [Suspect]
     Active Substance: ORLISTAT
     Dosage: 2 PILLS PER DAY
     Route: 048

REACTIONS (1)
  - Amenorrhoea [Unknown]
